FAERS Safety Report 10428015 (Version 1)
Quarter: 2014Q3

REPORT INFORMATION
  Report Type: Spontaneous
  Country: US (occurrence: None)
  Receive Date: 20140902
  Receipt Date: 20140902
  Transmission Date: 20150326
  Serious: Yes (Hospitalization)
  Sender: FDA-Public Use
  Company Number: None

PATIENT
  Age: 35 Year
  Sex: Male
  Weight: 173.2 kg

DRUGS (14)
  1. LASIX [Concomitant]
     Active Substance: FUROSEMIDE
  2. MULTIVITAMIN [Concomitant]
     Active Substance: VITAMINS
  3. CLONAZEPAM. [Concomitant]
     Active Substance: CLONAZEPAM
  4. NEURONTIN [Concomitant]
     Active Substance: GABAPENTIN
  5. SOFOSBUVIR [Suspect]
     Active Substance: SOFOSBUVIR
     Indication: HEPATITIS C
     Dosage: 1200 2X DAILY ORAL
     Route: 048
     Dates: start: 20140507
  6. RIBAVIRIN. [Suspect]
     Active Substance: RIBAVIRIN
     Indication: HEPATITIS C
     Dosage: 400 1X DAILY ORAL
     Route: 048
     Dates: start: 20140507
  7. LISINLPRIL [Concomitant]
  8. IBUPROFEN. [Concomitant]
     Active Substance: IBUPROFEN
  9. MORPHINE [Concomitant]
     Active Substance: MORPHINE
  10. SENOKOT [Concomitant]
     Active Substance: SENNOSIDES
  11. TRAZODONE [Concomitant]
     Active Substance: TRAZODONE HYDROCHLORIDE
  12. KEPPRA [Concomitant]
     Active Substance: LEVETIRACETAM
  13. TRAMADOL [Concomitant]
     Active Substance: TRAMADOL
  14. PROZAC [Concomitant]
     Active Substance: FLUOXETINE HYDROCHLORIDE

REACTIONS (1)
  - Depression [None]

NARRATIVE: CASE EVENT DATE: 20140507
